FAERS Safety Report 16248820 (Version 2)
Quarter: 2019Q2

REPORT INFORMATION
  Report Type: Spontaneous
  Country: DE (occurrence: DE)
  Receive Date: 20190429
  Receipt Date: 20190513
  Transmission Date: 20190711
  Serious: Yes (Other)
  Sender: FDA-Public Use
  Company Number: DE-ACCORD-121825

PATIENT
  Age: 64 Year
  Sex: Female

DRUGS (1)
  1. METHOTREXATE. [Suspect]
     Active Substance: METHOTREXATE
     Indication: SYSTEMIC LUPUS ERYTHEMATOSUS
     Dosage: 20 MG (LONG-TERM USE )

REACTIONS (3)
  - Foot fracture [Recovering/Resolving]
  - Osteoporosis [Recovering/Resolving]
  - Stress fracture [Recovered/Resolved]
